FAERS Safety Report 7641184-1 (Version None)
Quarter: 2011Q3

REPORT INFORMATION
  Report Type: 
  Country: None (occurrence: None)
  Receive Date: 20110728
  Receipt Date: 20110715
  Transmission Date: 20111222
  Serious: Yes (Other)
  Sender: FDA-Public Use
  Company Number: PHHY2011US23080

PATIENT
  Sex: Female

DRUGS (8)
  1. KLONPRIM [Concomitant]
  2. CLONAZEPAM [Concomitant]
     Dosage: 0.5 MG, HALF TABLET
  3. ZEBUTAL [Concomitant]
  4. HYDROCHLOROTHIAZIDE [Concomitant]
     Dosage: AS NEEDED
  5. AMBIEN [Concomitant]
     Dosage: 12.5 MG, UNK
  6. LOTREL [Suspect]
     Dosage: 5/10 MG, QD
  7. CALCIUM ACETATE [Concomitant]
  8. VITAMIN D [Concomitant]

REACTIONS (7)
  - SKIN ODOUR ABNORMAL [None]
  - CARDIOMEGALY [None]
  - MUSCLE SPASMS [None]
  - BLOOD PRESSURE INCREASED [None]
  - DRY MOUTH [None]
  - CONVULSION [None]
  - DYSPHAGIA [None]
